FAERS Safety Report 17469419 (Version 2)
Quarter: 2020Q2

REPORT INFORMATION
  Report Type: Spontaneous
  Country: US (occurrence: US)
  Receive Date: 20200227
  Receipt Date: 20200402
  Transmission Date: 20200713
  Serious: No
  Sender: FDA-Public Use
  Company Number: US-TEVA-2020-US-1189523

PATIENT
  Age: 59 Year
  Sex: Female

DRUGS (1)
  1. BUSPIRONE HYDROCHLORIDE TEVA [Suspect]
     Active Substance: BUSPIRONE HYDROCHLORIDE
     Indication: ANXIETY
     Route: 065
     Dates: start: 201911

REACTIONS (7)
  - Crying [Unknown]
  - Product substitution issue [Unknown]
  - Product taste abnormal [Unknown]
  - Thinking abnormal [Unknown]
  - Anger [Unknown]
  - Daydreaming [Unknown]
  - Drug ineffective [Unknown]

NARRATIVE: CASE EVENT DATE: 201911
